FAERS Safety Report 7419837-X (Version None)
Quarter: 2011Q2

REPORT INFORMATION
  Report Type: 
  Country: None (occurrence: None)
  Receive Date: 20110413
  Receipt Date: 20110413
  Transmission Date: 20111010
  Serious: Yes (Life-Threatening)
  Sender: FDA-Public Use
  Company Number: None

PATIENT
  Age: 65 Year
  Sex: Female
  Weight: 84.369 kg

DRUGS (1)
  1. ROCURONIUM BROMIDE [Suspect]

REACTIONS (1)
  - ADVERSE DRUG REACTION [None]
